FAERS Safety Report 7372011-8 (Version None)
Quarter: 2011Q1

REPORT INFORMATION
  Report Type: 
  Country: None (occurrence: None)
  Receive Date: 20110225
  Receipt Date: 20101111
  Transmission Date: 20110831
  Serious: No
  Sender: FDA-Public Use
  Company Number: 319585

PATIENT
  Age: 59 Year
  Sex: Female

DRUGS (3)
  1. METFOMIN (METFORMIN) [Concomitant]
  2. VICTOZA [Suspect]
     Indication: TYPE 2 DIABETES MELLITUS
     Dosage: SUBCUTANEOUS
     Route: 058
     Dates: start: 20101101
  3. AMARYL [Concomitant]

REACTIONS (4)
  - VISION BLURRED [None]
  - FLATULENCE [None]
  - ABDOMINAL PAIN UPPER [None]
  - BLOOD GLUCOSE DECREASED [None]
